FAERS Safety Report 23770521 (Version 2)
Quarter: 2025Q4

REPORT INFORMATION
  Report Type: Spontaneous
  Country: EU (occurrence: EU)
  Receive Date: 20240422
  Receipt Date: 20251006
  Transmission Date: 20260118
  Serious: Yes (Life-Threatening, Hospitalization, Other)
  Sender: SUNOVION
  Company Number: None

PATIENT
  Age: 38 Year
  Sex: Female

DRUGS (2)
  1. ESLICARBAZEPINE ACETATE [Suspect]
     Active Substance: ESLICARBAZEPINE ACETATE
     Indication: Temporal lobe epilepsy
     Dosage: UNK, UNKNOWN
     Route: 048
  2. LEVETIRACETAM [Suspect]
     Active Substance: LEVETIRACETAM
     Indication: Temporal lobe epilepsy
     Dosage: UNK, UNKNOWN
     Route: 048

REACTIONS (3)
  - Hepatic cytolysis [Recovered/Resolved]
  - Lymphadenopathy [Recovered/Resolved]
  - Drug reaction with eosinophilia and systemic symptoms [Recovered/Resolved]

NARRATIVE: CASE EVENT DATE: 20200422
